FAERS Safety Report 21447582 (Version 2)
Quarter: 2023Q4

REPORT INFORMATION
  Report Type: Spontaneous
  Country: FR (occurrence: FR)
  Receive Date: 20221012
  Receipt Date: 20231124
  Transmission Date: 20240109
  Serious: Yes (Hospitalization)
  Sender: FDA-Public Use
  Company Number: None

PATIENT
  Age: 79 Year
  Sex: Male

DRUGS (5)
  1. FUROSEMIDE [Suspect]
     Active Substance: FUROSEMIDE
     Indication: Cardiac failure
     Dosage: 40 MILLIGRAM DAILY; 40MG PER DAY, THERAPY END DATE : NASK
     Route: 065
     Dates: start: 202202
  2. IRBESARTAN [Suspect]
     Active Substance: IRBESARTAN
     Indication: Hypertension
     Dosage: 150 MILLIGRAM DAILY; 1 TAB IN THE MORNING, THERAPY END DATE : NASK
     Route: 065
     Dates: start: 2020
  3. BISOPROLOL FUMARATE [Suspect]
     Active Substance: BISOPROLOL FUMARATE
     Indication: Cardiac failure
     Dosage: 2.5 MILLIGRAM DAILY; 2.5MG PER DAY, THERAPY END DATE : NASK
     Route: 065
     Dates: start: 202203
  4. ELIQUIS [Suspect]
     Active Substance: APIXABAN
     Indication: Prophylaxis
     Dosage: 10 MILLIGRAM DAILY; 5 MG MORNING AND EVENING, STRENGTH :  5 MG, THERAPY END DATE : NASK
     Route: 065
     Dates: start: 202203
  5. PLAVIX [Suspect]
     Active Substance: CLOPIDOGREL BISULFATE
     Indication: Prophylaxis
     Dosage: 75 MILLIGRAM DAILY; 75MG PER DAY, STRENGTH : 75 MG , THERAPY END DATE : NASK
     Route: 065
     Dates: start: 202203

REACTIONS (2)
  - Eczema [Recovered/Resolved]
  - Dermatitis exfoliative generalised [Not Recovered/Not Resolved]

NARRATIVE: CASE EVENT DATE: 20220320
